APPROVED DRUG PRODUCT: DEFENCATH
Active Ingredient: HEPARIN SODIUM; TAUROLIDINE
Strength: 3,000 UNITS/3ML (1,000 UNITS/ML);40.5MG/3ML (13.5MG/ML)
Dosage Form/Route: SOLUTION;N/A
Application: N214520 | Product #001
Applicant: CORMEDIX INC
Approved: Nov 15, 2023 | RLD: Yes | RS: Yes | Type: RX

PATENTS:
Patent 7696182 | Expires: May 16, 2026
Patent 11738120 | Expires: Apr 15, 2042

EXCLUSIVITY:
Code: NCE | Date: Nov 15, 2028
Code: GAIN | Date: Nov 15, 2033